FAERS Safety Report 4641238-8 (Version None)
Quarter: 2005Q2

REPORT INFORMATION
  Report Type: 
  Country: None (occurrence: None)
  Receive Date: 20050419
  Receipt Date: 20050419
  Transmission Date: 20051028
  Serious: Yes (Death)
  Sender: FDA-Public Use
  Company Number: None

PATIENT
  Age: 38 Year
  Sex: Male
  Weight: 97.4 kg

DRUGS (3)
  1. DOCETAXEL [Suspect]
     Indication: MALIGNANT MELANOMA
     Dosage: 65 MG/M2, IV, Q3W
     Route: 042
     Dates: start: 20041118
  2. OXALIPLATIN [Suspect]
     Dosage: 85 MG/M2, IV, Q3W
     Route: 042
     Dates: start: 20041119
  3. GM-CSF [Suspect]
     Dates: start: 20041120, end: 20041129

REACTIONS (2)
  - MALIGNANT MELANOMA [None]
  - METASTASES TO CENTRAL NERVOUS SYSTEM [None]
